FAERS Safety Report 5623797-1 (Version None)
Quarter: 2008Q1

REPORT INFORMATION
  Report Type: 
  Country: None (occurrence: None)
  Receive Date: 20080207
  Receipt Date: 20080201
  Transmission Date: 20080703
  Serious: Yes (Hospitalization)
  Sender: FDA-Public Use
  Company Number: 2007BI025965

PATIENT
  Age: 53 Year
  Sex: Female

DRUGS (1)
  1. TYSABRI [Suspect]
     Indication: MULTIPLE SCLEROSIS
     Dosage: IV
     Route: 042
     Dates: start: 20071105

REACTIONS (10)
  - CHEST PAIN [None]
  - COLD SWEAT [None]
  - FEELING HOT [None]
  - HEADACHE [None]
  - ILL-DEFINED DISORDER [None]
  - NAUSEA [None]
  - NERVE COMPRESSION [None]
  - PAIN [None]
  - POOR QUALITY SLEEP [None]
  - SENSATION OF HEAVINESS [None]
